FAERS Safety Report 10638218 (Version 1)
Quarter: 2014Q4

REPORT INFORMATION
  Report Type: Spontaneous
  Country: US (occurrence: None)
  Receive Date: 20141121
  Receipt Date: 20141121
  Transmission Date: 20150529
  Serious: No
  Sender: FDA-Public Use
  Company Number: 163-10004-14073189

PATIENT
  Age: 63 Year
  Sex: Female

DRUGS (11)
  1. COZAAR (LOSARTAN POTASSIUM) (UNKNOWN) [Concomitant]
  2. VIT D3 (COLECALCIFEROL) (UNKNOWN) [Concomitant]
  3. FA (FLAVINE ADENINE DINUCLEOTIDE DISODIUM) (UNKNOWN) [Concomitant]
  4. SIMUVASTATIN (SIMVASTATIN) (UNKNOWN) [Concomitant]
  5. CALCIUM (CALCIUM) (UNKNOWN) [Concomitant]
  6. VIT B12 (CYANOCOBALAMIN) (UNKNOWN) [Concomitant]
  7. OTEZLA [Suspect]
     Active Substance: APREMILAST
     Indication: PSORIATIC ARTHROPATHY
     Dosage: 60 MG, 2 IN 1 D, PO
     Route: 048
     Dates: start: 20140711
  8. METFORMIN (METFORMIN) (UNKNOWN) [Concomitant]
  9. SYNTHROID (LEVOTHYROXINE SODIUM) (UNKNOWN) [Concomitant]
  10. ZANTAC (RANITIDINE HYDROCHLORIDE) (UNKNOWN) [Concomitant]
  11. MOTRIN (IBUPROFEN) (UNKNOWN) [Concomitant]

REACTIONS (2)
  - Diarrhoea [None]
  - Pain [None]

NARRATIVE: CASE EVENT DATE: 20140712
